FAERS Safety Report 7471242-6 (Version None)
Quarter: 2011Q2

REPORT INFORMATION
  Report Type: 
  Country: None (occurrence: None)
  Receive Date: 20110510
  Receipt Date: 20110509
  Transmission Date: 20111010
  Serious: Yes (Life-Threatening, Other)
  Sender: FDA-Public Use
  Company Number: FR-PFIZER INC-2011074674

PATIENT
  Age: 20 Year
  Sex: Male
  Weight: 72 kg

DRUGS (1)
  1. VARENICLINE TARTRATE [Suspect]
     Indication: SMOKING CESSATION THERAPY
     Dosage: UNK
     Dates: start: 20110101, end: 20110101

REACTIONS (4)
  - AFFECTIVE DISORDER [None]
  - INSOMNIA [None]
  - NIGHTMARE [None]
  - SUICIDE ATTEMPT [None]
